FAERS Safety Report 11844276 (Version 1)
Quarter: 2015Q4

REPORT INFORMATION
  Report Type: Spontaneous
  Country: GB (occurrence: GB)
  Receive Date: 20151217
  Receipt Date: 20151217
  Transmission Date: 20160305
  Serious: Yes (Other)
  Sender: FDA-Public Use
  Company Number: GB-WATSON-2015-27319

PATIENT
  Age: 8 Year
  Sex: Male
  Weight: 27 kg

DRUGS (3)
  1. OXYBUTYNIN (UNKNOWN) [Suspect]
     Active Substance: OXYBUTYNIN
     Indication: ENURESIS
     Dosage: 10 MG, QPM
     Route: 048
     Dates: start: 20150904, end: 20151003
  2. PARACETAMOL [Concomitant]
     Active Substance: ACETAMINOPHEN
     Indication: PRODUCT USED FOR UNKNOWN INDICATION
     Dosage: UNK
     Route: 065
  3. IBUPROFEN. [Concomitant]
     Active Substance: IBUPROFEN
     Indication: PRODUCT USED FOR UNKNOWN INDICATION
     Dosage: UNK
     Route: 065

REACTIONS (4)
  - Dry skin [Recovered/Resolved]
  - Dysphonia [Recovered/Resolved]
  - Educational problem [None]
  - Ear infection [Unknown]

NARRATIVE: CASE EVENT DATE: 20150911
